FAERS Safety Report 8842654 (Version 5)
Quarter: 2013Q4

REPORT INFORMATION
  Report Type: Spontaneous
  Country: US (occurrence: US)
  Receive Date: 20121016
  Receipt Date: 20131008
  Transmission Date: 20140711
  Serious: Yes (Other)
  Sender: FDA-Public Use
  Company Number: US-ROCHE-1048005

PATIENT
  Age: 40 Year
  Sex: Male
  Weight: 85.35 kg

DRUGS (4)
  1. ACCUTANE [Suspect]
     Indication: ACNE
     Route: 048
     Dates: start: 20071206
  2. ACCUTANE [Suspect]
     Route: 048
     Dates: start: 20080728, end: 200808
  3. ACCUTANE [Suspect]
     Route: 065
     Dates: start: 200809, end: 200912
  4. ZYPREXA [Concomitant]

REACTIONS (8)
  - Crohn^s disease [Unknown]
  - Emotional distress [Unknown]
  - Anxiety [Unknown]
  - Inflammatory bowel disease [Unknown]
  - Intestinal haemorrhage [Unknown]
  - Rectal polyp [Unknown]
  - Dry skin [Unknown]
  - Blood triglycerides increased [Unknown]
